FAERS Safety Report 8115996-4 (Version None)
Quarter: 2011Q4

REPORT INFORMATION
  Report Type: 
  Country: None (occurrence: None)
  Receive Date: 20111227
  Receipt Date: 20111110
  Transmission Date: 20120403
  Serious: Yes (Other)
  Sender: FDA-Public Use
  Company Number: PHHY2011US52100

PATIENT
  Age: 46 Year
  Sex: Female

DRUGS (9)
  1. GILENYA [Suspect]
     Indication: MULTIPLE SCLEROSIS
     Dosage: 0.5 MG, QD, ORAL
     Route: 048
     Dates: start: 20110608
  2. AVONEX [Suspect]
     Indication: MULTIPLE SCLEROSIS
  3. BETASERON [Suspect]
     Indication: MULTIPLE SCLEROSIS
  4. AMBIEN [Concomitant]
  5. NAPROXEN (ALEVE) [Suspect]
  6. REBIF [Suspect]
     Indication: MULTIPLE SCLEROSIS
  7. DITROPAN XL [Concomitant]
  8. ACETAMINOPHEN [Suspect]
  9. NOVANTRONE [Suspect]

REACTIONS (10)
  - HEART RATE DECREASED [None]
  - BOWEL MOVEMENT IRREGULARITY [None]
  - DIZZINESS [None]
  - POLLAKIURIA [None]
  - INFLUENZA LIKE ILLNESS [None]
  - GASTROINTESTINAL DISORDER [None]
  - PALPITATIONS [None]
  - FATIGUE [None]
  - LETHARGY [None]
  - DYSPNOEA [None]
